FAERS Safety Report 18718180 (Version 1)
Quarter: 2021Q1

REPORT INFORMATION
  Report Type: Report from Study
  Country: US (occurrence: US)
  Receive Date: 20210108
  Receipt Date: 20210108
  Transmission Date: 20210419
  Serious: Yes (Death)
  Sender: FDA-Public Use
  Company Number: US-BAYER-2020-286428

PATIENT
  Age: 56 Year
  Sex: Male

DRUGS (16)
  1. DOXICYCLINE [DOXYCYCLINE] [Concomitant]
     Active Substance: DOXYCYCLINE
     Dosage: 1000 MG
  2. LANTUS [Concomitant]
     Active Substance: INSULIN GLARGINE
  3. METHYLPHENIDAT [Concomitant]
     Active Substance: METHYLPHENIDATE
     Dosage: 20 MG
  4. BACLOFEN. [Concomitant]
     Active Substance: BACLOFEN
     Dosage: 20 MG
  5. ZETIA [Concomitant]
     Active Substance: EZETIMIBE
     Dosage: 10 MG
  6. CEPHALEXIN [CEFALEXIN] [Concomitant]
     Active Substance: CEPHALEXIN
  7. LISINOPRIL/HYDROCHLOROTHIAZID [Concomitant]
     Active Substance: HYDROCHLOROTHIAZIDE\LISINOPRIL
     Dosage: TABLET 10?12.5
  8. MECLIZINE [Concomitant]
     Active Substance: MECLIZINE HYDROCHLORIDE
     Dosage: 25 MG
  9. METFORMIN [Concomitant]
     Active Substance: METFORMIN HYDROCHLORIDE
     Dosage: 500 MG
  10. NAPROXEN. [Concomitant]
     Active Substance: NAPROXEN
     Dosage: 25 MG
  11. ZONISAMIDE. [Concomitant]
     Active Substance: ZONISAMIDE
     Dosage: 100 MG
  12. LAMOTRIGIN [Concomitant]
     Active Substance: LAMOTRIGINE
     Dosage: 200 MG
  13. LOVASTATIN. [Concomitant]
     Active Substance: LOVASTATIN
     Dosage: 20 MG
  14. METOPROLOL. [Concomitant]
     Active Substance: METOPROLOL
     Dosage: 50 MG
  15. BETASERON [Suspect]
     Active Substance: INTERFERON BETA-1B
     Indication: POLYNEUROPATHY
     Dosage: 1.59 MG, TIW
     Route: 058
     Dates: start: 20160622
  16. GABAPENTIN. [Concomitant]
     Active Substance: GABAPENTIN
     Dosage: 300 MG

REACTIONS (4)
  - Product use issue [None]
  - Off label use [None]
  - Death [Fatal]
  - Product use in unapproved indication [None]

NARRATIVE: CASE EVENT DATE: 20201220
